FAERS Safety Report 24318266 (Version 3)
Quarter: 2025Q3

REPORT INFORMATION
  Report Type: Spontaneous
  Country: EU (occurrence: EU)
  Receive Date: 20240913
  Receipt Date: 20250703
  Transmission Date: 20251021
  Serious: Yes (Other)
  Sender: TAKEDA
  Company Number: EU-ZENTIVA-2024-ZT-012720

PATIENT
  Age: 24 Year
  Sex: Female

DRUGS (25)
  1. MESALAMINE [Suspect]
     Active Substance: MESALAMINE
     Indication: Thalassaemia beta
  2. DEFERASIROX [Suspect]
     Active Substance: DEFERASIROX
     Indication: Thalassaemia beta
  3. ALENDRONATE [Concomitant]
     Active Substance: ALENDRONATE SODIUM
     Indication: Thalassaemia beta
  4. DROSPIRENONE AND ETHINYL ESTRADIOL [Concomitant]
     Active Substance: DROSPIRENONE\ETHINYL ESTRADIOL
     Indication: Thalassaemia beta
  5. CHOLECALCIFEROL [Concomitant]
     Active Substance: CHOLECALCIFEROL
     Indication: Thalassaemia beta
  6. PROVENTIL HFA [Concomitant]
     Active Substance: ALBUTEROL SULFATE
     Indication: Wheezing
     Dosage: UNK UNK, Q6HR
  7. VENTOLIN HFA [Concomitant]
     Active Substance: ALBUTEROL SULFATE
     Indication: Wheezing
     Dosage: UNK UNK, Q6HR
  8. WELLBUTRIN XL [Concomitant]
     Active Substance: BUPROPION HYDROCHLORIDE
     Dosage: UNK UNK, QD
  9. Oscal 500d [Concomitant]
     Dosage: UNK UNK, QD
  10. COREG [Concomitant]
     Active Substance: CARVEDILOL
     Dosage: UNK UNK, BID
  11. VITAMIN D3 [Concomitant]
     Active Substance: CHOLECALCIFEROL
     Dosage: UNK UNK, QD
  12. DEPAKOTE [Concomitant]
     Active Substance: DIVALPROEX SODIUM
     Dosage: UNK UNK, QD
  13. JARDIANCE [Concomitant]
     Active Substance: EMPAGLIFLOZIN
     Dosage: UNK UNK, QD
  14. ZETIA [Concomitant]
     Active Substance: EZETIMIBE
  15. FOLVITE [Concomitant]
     Active Substance: FOLIC ACID
     Dosage: UNK UNK, QD
  16. GLUCOTROL [Concomitant]
     Active Substance: GLIPIZIDE
  17. TRESIBA [Concomitant]
     Active Substance: INSULIN DEGLUDEC
     Dosage: UNK UNK, QD
  18. LANTUS SOLOSTAR [Concomitant]
     Active Substance: INSULIN GLARGINE
  19. SYNTHROID [Concomitant]
     Active Substance: LEVOTHYROXINE SODIUM
     Dosage: UNK UNK, QD
  20. VITAMINS [Concomitant]
     Active Substance: VITAMINS
     Dosage: UNK UNK, QD
  21. DELTASONE [Concomitant]
     Active Substance: PREDNISONE
     Dosage: UNK UNK, QD
  22. RAPAMUNE [Concomitant]
     Active Substance: SIROLIMUS
     Dosage: UNK UNK, QD
  23. SONATA [Concomitant]
     Active Substance: ZALEPLON
  24. CYTOGAM [Concomitant]
     Active Substance: HUMAN CYTOMEGALOVIRUS IMMUNE GLOBULIN
     Indication: Adjuvant therapy
  25. LETERMOVIR [Concomitant]
     Active Substance: LETERMOVIR
     Indication: Viral infection

REACTIONS (8)
  - Colitis erosive [Recovered/Resolved]
  - Haematochezia [Recovered/Resolved]
  - Hepatotoxicity [Recovered/Resolved]
  - Colitis ulcerative [Recovered/Resolved]
  - Faecal calprotectin increased [Recovered/Resolved]
  - Drug ineffective [Unknown]
  - Abdominal pain [Recovered/Resolved]
  - Diarrhoea [Recovered/Resolved]
